FAERS Safety Report 5558157-5 (Version None)
Quarter: 2007Q4

REPORT INFORMATION
  Report Type: 
  Country: None (occurrence: None)
  Receive Date: 20071214
  Receipt Date: 20070208
  Transmission Date: 20080405
  Serious: Yes (Other)
  Sender: FDA-Public Use
  Company Number: US-PFIZER INC-2006098752

PATIENT
  Sex: Male
  Weight: 68 kg

DRUGS (6)
  1. DILANTIN [Suspect]
     Indication: CONVULSION
  2. DILANTIN [Suspect]
     Indication: EPILEPSY
  3. MOTRIN [Suspect]
     Indication: PAIN
  4. ROBAXIN [Suspect]
     Indication: PAIN
  5. SKELAXIN [Suspect]
     Indication: PAIN
  6. VICODIN [Suspect]
     Indication: PAIN

REACTIONS (16)
  - ADVERSE DRUG REACTION [None]
  - ANTICONVULSANT DRUG LEVEL BELOW THERAPEUTIC [None]
  - BLOOD CHOLESTEROL INCREASED [None]
  - BODY HEIGHT DECREASED [None]
  - CONTUSION [None]
  - CONVULSION [None]
  - CORONARY ARTERY BYPASS [None]
  - DIARRHOEA [None]
  - GASTRITIS EROSIVE [None]
  - LABORATORY TEST INTERFERENCE [None]
  - LUMBAR SPINE FLATTENING [None]
  - MEMORY IMPAIRMENT [None]
  - MUSCLE INJURY [None]
  - PAIN [None]
  - ROAD TRAFFIC ACCIDENT [None]
  - WHIPLASH INJURY [None]
